FAERS Safety Report 15268349 (Version 1)
Quarter: 2018Q3

REPORT INFORMATION
  Report Type: Spontaneous
  Country: US (occurrence: US)
  Receive Date: 20180725
  Receipt Date: 20180725
  Transmission Date: 20181010
  Serious: Yes (Hospitalization)
  Sender: FDA-Public Use
  Company Number: None

PATIENT
  Age: 65 Year
  Sex: Male

DRUGS (1)
  1. DAPTOMYCIN. [Suspect]
     Active Substance: DAPTOMYCIN
     Indication: INFECTION
     Route: 042
     Dates: start: 20180328, end: 20180420

REACTIONS (3)
  - Eosinophilic pneumonia [None]
  - Acute respiratory failure [None]
  - Alveolitis allergic [None]

NARRATIVE: CASE EVENT DATE: 20180420
